FAERS Safety Report 25470508 (Version 1)
Quarter: 2025Q2

REPORT INFORMATION
  Report Type: Spontaneous
  Country: BE (occurrence: BE)
  Receive Date: 20250624
  Receipt Date: 20250624
  Transmission Date: 20250716
  Serious: Yes (Disabling, Other)
  Sender: OXFORD PHARMACEUTICALS, LLC
  Company Number: BE-Oxford Pharmaceuticals, LLC-2179242

PATIENT
  Age: 23 Year
  Sex: Female

DRUGS (1)
  1. METHYLPHENIDATE HYDROCHLORIDE [Suspect]
     Active Substance: METHYLPHENIDATE HYDROCHLORIDE
     Indication: Attention deficit hyperactivity disorder

REACTIONS (12)
  - Vision blurred [Not Recovered/Not Resolved]
  - Agitation [Unknown]
  - Hypervigilance [Recovered/Resolved]
  - Logorrhoea [Recovered/Resolved]
  - Tachycardia [Unknown]
  - Hypertension [Unknown]
  - Mydriasis [Unknown]
  - Aphasia [Recovered/Resolved]
  - Insomnia [Recovered/Resolved]
  - Restlessness [Recovered/Resolved]
  - Nausea [Unknown]
  - Toxicity to various agents [Unknown]
